FAERS Safety Report 8328861-4 (Version None)
Quarter: 2012Q2

REPORT INFORMATION
  Report Type: 
  Country: None (occurrence: None)
  Receive Date: 20120502
  Receipt Date: 20120425
  Transmission Date: 20120825
  Serious: Yes (Hospitalization)
  Sender: FDA-Public Use
  Company Number: PHHY2012FR036112

PATIENT
  Sex: Female

DRUGS (11)
  1. FORTIMEL [Concomitant]
  2. LASIX [Concomitant]
  3. FOLIC ACID [Concomitant]
  4. VICHY [Concomitant]
  5. BISOPROLOL FUMARATE [Concomitant]
     Dosage: 5 MG, UNK
  6. POTASSIUM CHLORIDE [Concomitant]
  7. ARANESP [Concomitant]
     Dosage: 70 UG, UNK
  8. FERROUS SULFATE TAB [Concomitant]
  9. LOPERAMIDE [Concomitant]
  10. AFINITOR [Suspect]
     Dosage: 10 MG, QD
     Route: 048
     Dates: start: 20111128, end: 20111204
  11. ZOPICLONE [Concomitant]

REACTIONS (3)
  - LUNG DISORDER [None]
  - PYREXIA [None]
  - PANCYTOPENIA [None]
